FAERS Safety Report 18689124 (Version 4)
Quarter: 2021Q1

REPORT INFORMATION
  Report Type: Report from Study
  Country: US (occurrence: US)
  Receive Date: 20201231
  Receipt Date: 20210324
  Transmission Date: 20210419
  Serious: Yes (Hospitalization, Other)
  Sender: FDA-Public Use
  Company Number: US-EMD SERONO-9208011

PATIENT
  Age: 32 Year
  Sex: Male

DRUGS (1)
  1. MAVENCLAD [Suspect]
     Active Substance: CLADRIBINE
     Indication: MULTIPLE SCLEROSIS
     Dosage: YEAR ONE MONTH ONE THERAPY
     Route: 048
     Dates: start: 20201116, end: 20201120

REACTIONS (8)
  - Sepsis [Recovering/Resolving]
  - Diabetic ketoacidosis [Unknown]
  - Viral infection [Unknown]
  - Thirst [Unknown]
  - Tremor [Unknown]
  - Blood glucose increased [Not Recovered/Not Resolved]
  - Weight decreased [Unknown]
  - Choking sensation [Unknown]

NARRATIVE: CASE EVENT DATE: 2020
